FAERS Safety Report 7939220-8 (Version None)
Quarter: 2011Q4

REPORT INFORMATION
  Report Type: 
  Country: None (occurrence: None)
  Receive Date: 20111124
  Receipt Date: 20111027
  Transmission Date: 20120403
  Serious: Yes (Life-Threatening, Hospitalization)
  Sender: FDA-Public Use
  Company Number: FR-ROCHE-799828

PATIENT
  Sex: Male

DRUGS (17)
  1. TRUSOPT [Concomitant]
  2. MYCOPHENOLATE MOFETIL (CELLCEPT) [Suspect]
     Route: 048
  3. CYCLOPHOSPHAMIDE [Suspect]
     Route: 048
  4. BACTRIM [Concomitant]
     Dosage: TOTAL DAILY DOSE: 400/80 MG
  5. ASPIRIN [Concomitant]
  6. BISOPROLOL FUMARATE [Concomitant]
  7. VALGANCICLOVIR [Concomitant]
     Dosage: TOTAL DAILY DOSE: 450 (NO UNITS SPECIFIED).
  8. CALCIUM CARBONATE [Concomitant]
  9. CYCLOPHOSPHAMIDE [Suspect]
  10. PREDNISONE TAB [Suspect]
     Indication: RENAL TRANSPLANT
     Route: 048
  11. MYCOPHENOLATE MOFETIL (CELLCEPT) [Suspect]
     Indication: RENAL TRANSPLANT
     Dosage: TEMPORARILY INTERRUPTED
     Route: 048
     Dates: start: 20110317, end: 20110627
  12. CYCLOSPORINE [Suspect]
     Indication: RENAL TRANSPLANT
     Dosage: NEORAL
     Route: 048
  13. ALFUZOSIN HCL [Concomitant]
     Dosage: TOTAL DAILY DOSE: 1 TABLET. DRUG NAME REPORTED AS: XATRAL LP.
  14. SODIUM BICARBONATE [Concomitant]
  15. NEXIUM [Concomitant]
  16. LYRICA [Concomitant]
  17. IMOVANE [Concomitant]

REACTIONS (5)
  - SEPTIC SHOCK [None]
  - RENAL FAILURE ACUTE [None]
  - AGRANULOCYTOSIS [None]
  - PNEUMONIA [None]
  - TRANSPLANT REJECTION [None]
